FAERS Safety Report 24382514 (Version 2)
Quarter: 2024Q4

REPORT INFORMATION
  Report Type: Report from Study
  Country: US (occurrence: US)
  Receive Date: 20241001
  Receipt Date: 20241003
  Transmission Date: 20250114
  Serious: Yes (Other)
  Sender: ACCORD
  Company Number: US-Accord-447867

PATIENT
  Age: 17 Year
  Sex: Female

DRUGS (1)
  1. CLOZAPINE [Suspect]
     Active Substance: CLOZAPINE
     Indication: Product used for unknown indication
     Dosage: 25MG AND A 100MG
     Route: 048

REACTIONS (4)
  - Neutrophilia [Unknown]
  - Autism spectrum disorder [Unknown]
  - Refusal of treatment by patient [Unknown]
  - Investigation noncompliance [Unknown]

NARRATIVE: CASE EVENT DATE: 20240814
